FAERS Safety Report 9017475 (Version 1)
Quarter: 2013Q1

REPORT INFORMATION
  Report Type: Report from Study
  Country: ES (occurrence: ES)
  Receive Date: 20130117
  Receipt Date: 20130117
  Transmission Date: 20140127
  Serious: Yes (Hospitalization)
  Sender: FDA-Public Use
  Company Number: ES-BAXTER-2013BAX001283

PATIENT
  Age: 68 Year
  Sex: Male
  Weight: 66 kg

DRUGS (3)
  1. GENOXAL [Suspect]
     Indication: CHRONIC LYMPHOCYTIC LEUKAEMIA
     Route: 065
     Dates: start: 20110912, end: 20110914
  2. RITUXIMAB [Suspect]
     Indication: CHRONIC LYMPHOCYTIC LEUKAEMIA
     Route: 065
     Dates: start: 20110912, end: 20110912
  3. FLUDARABINE PHOSPHATE [Suspect]
     Indication: CHRONIC LYMPHOCYTIC LEUKAEMIA
     Route: 065
     Dates: start: 20110912, end: 20110914

REACTIONS (7)
  - Haemolysis [Unknown]
  - Pallor [Unknown]
  - Anaemia [Unknown]
  - Asthenia [Unknown]
  - Anaemia [Recovered/Resolved]
  - Diarrhoea infectious [Recovered/Resolved]
  - Neutropenia [Recovered/Resolved]
